FAERS Safety Report 9249197 (Version 1)
Quarter: 2013Q2

REPORT INFORMATION
  Report Type: Other
  Country: GB (occurrence: GB)
  Receive Date: 20130423
  Receipt Date: 20130423
  Transmission Date: 20140414
  Serious: Yes (Other)
  Sender: FDA-Public Use
  Company Number: GB-ACTAVIS-2013-06896

PATIENT
  Age: 66 Year
  Sex: Female

DRUGS (4)
  1. FEXOFENADINE (UNKNOWN) [Suspect]
     Indication: RASH
     Dosage: 120 MG, DAILY
     Route: 048
     Dates: start: 20130328, end: 20130402
  2. PROPRANOLOL (WATSON LABORATORIES) [Suspect]
     Indication: PRODUCT USED FOR UNKNOWN INDICATION
     Dosage: 40 MG, BID
     Route: 065
  3. LISINOPRIL                         /00894002/ [Concomitant]
     Indication: PRODUCT USED FOR UNKNOWN INDICATION
     Route: 065
  4. FLUCLOXACILLIN SODIUM [Concomitant]
     Indication: PRODUCT USED FOR UNKNOWN INDICATION

REACTIONS (3)
  - Drug interaction [Unknown]
  - Fatigue [Unknown]
  - Malaise [Unknown]
